FAERS Safety Report 10587464 (Version 1)
Quarter: 2014Q4

REPORT INFORMATION
  Report Type: Spontaneous
  Country: US (occurrence: US)
  Receive Date: 20141117
  Receipt Date: 20141117
  Transmission Date: 20150529
  Serious: No
  Sender: FDA-Public Use
  Company Number: US-PFIZER INC-2014312961

PATIENT
  Age: 10 Year
  Sex: Female
  Weight: 44 kg

DRUGS (1)
  1. QUILLIVANT XR [Suspect]
     Active Substance: METHYLPHENIDATE HYDROCHLORIDE
     Indication: ATTENTION DEFICIT/HYPERACTIVITY DISORDER
     Dosage: 3 ML, 1X/DAY
     Route: 048
     Dates: start: 2012

REACTIONS (1)
  - Activities of daily living impaired [Not Recovered/Not Resolved]
